FAERS Safety Report 25356194 (Version 2)
Quarter: 2025Q2

REPORT INFORMATION
  Report Type: Spontaneous
  Country: JP (occurrence: JP)
  Receive Date: 20250526
  Receipt Date: 20250529
  Transmission Date: 20250716
  Serious: Yes (Life-Threatening, Other)
  Sender: OTSUKA
  Company Number: JP-MMM-Otsuka-TSQ5NR7K

PATIENT
  Sex: Male
  Weight: 52.8 kg

DRUGS (1)
  1. REXULTI [Suspect]
     Active Substance: BREXPIPRAZOLE
     Indication: Allergy test
     Dosage: 2 MG/TIME, QD
     Route: 048
     Dates: start: 20240515, end: 20240801

REACTIONS (1)
  - Suicide attempt [Recovered/Resolved]

NARRATIVE: CASE EVENT DATE: 20250516
